FAERS Safety Report 24087995 (Version 1)
Quarter: 2024Q3

REPORT INFORMATION
  Report Type: Report from Study
  Country: US (occurrence: US)
  Receive Date: 20240715
  Receipt Date: 20240715
  Transmission Date: 20241016
  Serious: Yes (Other)
  Sender: UCB
  Company Number: US-UCBSA-2024035186

PATIENT
  Sex: Female

DRUGS (14)
  1. ROTIGOTINE [Suspect]
     Active Substance: ROTIGOTINE
     Indication: Product used for unknown indication
     Dosage: 4 MILLIGRAM, ONCE DAILY (QD)
     Route: 062
     Dates: start: 20240625
  2. MIRAPEX [Concomitant]
     Active Substance: PRAMIPEXOLE DIHYDROCHLORIDE
     Indication: Product used for unknown indication
     Dosage: 0.5 MILLIGRAM
  3. AMANTADINE HYDROCHLORIDE [Concomitant]
     Active Substance: AMANTADINE HYDROCHLORIDE
     Indication: Product used for unknown indication
     Dosage: 100 MILLIGRAM, 2X/DAY (BID)
     Route: 048
     Dates: start: 20231017
  4. VITAMIN C [Concomitant]
     Active Substance: ASCORBIC ACID
     Indication: Product used for unknown indication
     Dosage: 1000 MILLIGRAM, ONCE DAILY (QD)
     Route: 048
  5. CALCIUM CARBONATE [Concomitant]
     Active Substance: CALCIUM CARBONATE
     Indication: Product used for unknown indication
     Dosage: 1 TABLET BY MOUTH DAILY
     Route: 048
  6. SINEMET [Concomitant]
     Active Substance: CARBIDOPA\LEVODOPA
     Indication: Product used for unknown indication
     Dosage: 25-100 MG (TAKE 1 TABLET AT 7AM AND 2PM, AND TAKE 1/2 TABLET AT 7PM AND 12.AM. MAY USE UP TO 4 TABLE
     Dates: start: 20231017
  7. XALATAN [Concomitant]
     Active Substance: LATANOPROST
     Indication: Product used for unknown indication
     Dosage: 0.005 % OPHTHALMIC SOLUTION (INSTILL 1 DROP INTO RIGHT EYE AT BEDTIME, DISCARD BOTTLE AFTER 42 DAYS)
     Dates: start: 20230929
  8. MAGNESIUM [Concomitant]
     Active Substance: MAGNESIUM
     Indication: Product used for unknown indication
     Dosage: 400 MILLIGRAM
     Route: 048
  9. VITAMINS [Concomitant]
     Active Substance: VITAMINS
     Indication: Product used for unknown indication
     Dosage: TAKE 1 TABLET BY MOUTH DAILY
     Route: 048
  10. MINERALS\VITAMINS [Concomitant]
     Active Substance: MINERALS\VITAMINS
     Indication: Product used for unknown indication
     Dosage: UNK, HAIR,SKIN AND NAILS
     Route: 048
  11. TRENTAL [Concomitant]
     Active Substance: PENTOXIFYLLINE
     Indication: Product used for unknown indication
     Dosage: TAKE 1 TABLET (400 MG TOTAL) BY MOUTH 3 (THREE) TIMES A DAY
     Route: 048
     Dates: start: 20230131
  12. DIETARY SUPPLEMENT\RESVERATROL [Concomitant]
     Active Substance: DIETARY SUPPLEMENT\RESVERATROL
     Indication: Product used for unknown indication
     Dosage: 180 MILLIGRAM
     Route: 048
  13. TURMERIC [Concomitant]
     Active Substance: TURMERIC
     Indication: Product used for unknown indication
     Dosage: TAKE 2 CAPSULES BY MOUTH DAILY. TURMERIC AND BLACKPEPPER (600 MG 1 CAPSULE/DAY TURMERIC AND 5 MG BLA
     Route: 048
  14. BRAIN BOOSTER [Concomitant]
     Indication: Product used for unknown indication
     Dosage: UNK, 2 CAPSULES DAILY

REACTIONS (2)
  - Parkinson^s disease [Not Recovered/Not Resolved]
  - Deep brain stimulation [Not Recovered/Not Resolved]
